FAERS Safety Report 18547100 (Version 1)
Quarter: 2020Q4

REPORT INFORMATION
  Report Type: Spontaneous
  Country: CN (occurrence: CN)
  Receive Date: 20201125
  Receipt Date: 20201125
  Transmission Date: 20210114
  Serious: Yes (Hospitalization)
  Sender: FDA-Public Use
  Company Number: CN-ELI_LILLY_AND_COMPANY-CN202011006834

PATIENT
  Age: 14 Year
  Sex: Female
  Weight: 45 kg

DRUGS (3)
  1. SERTRALINE HYDROCHLORIDE. [Suspect]
     Active Substance: SERTRALINE HYDROCHLORIDE
     Indication: DEPRESSION
     Dosage: UNK UNK, SINGLE
     Route: 048
     Dates: start: 20201101, end: 20201101
  2. ZYPREXA [Suspect]
     Active Substance: OLANZAPINE
     Indication: DEPRESSION
     Dosage: 70 MG, SINGLE (14 TABLETS OF 5 MG)
     Route: 048
     Dates: start: 20201101, end: 20201101
  3. LORAZEPAM. [Suspect]
     Active Substance: LORAZEPAM
     Indication: DEPRESSION
     Dosage: 5 MG, SINGLE
     Route: 048
     Dates: start: 20201101, end: 20201101

REACTIONS (5)
  - Hypotonia [Recovering/Resolving]
  - Accidental overdose [Recovering/Resolving]
  - Syncope [Recovering/Resolving]
  - Unresponsive to stimuli [Recovering/Resolving]
  - Toxicity to various agents [Recovering/Resolving]

NARRATIVE: CASE EVENT DATE: 20201101
